FAERS Safety Report 13194729 (Version 1)
Quarter: 2017Q1

REPORT INFORMATION
  Report Type: Spontaneous
  Country: CN (occurrence: CN)
  Receive Date: 20170207
  Receipt Date: 20170207
  Transmission Date: 20170428
  Serious: Yes (Life-Threatening)
  Sender: FDA-Public Use
  Company Number: CN-PFIZER INC-2017051616

PATIENT
  Age: 20 Day
  Sex: Female
  Weight: 3.7 kg

DRUGS (4)
  1. SODIUM CHLORIDE. [Concomitant]
     Active Substance: SODIUM CHLORIDE
     Indication: VEHICLE SOLUTION USE
     Dosage: 5 ML, 2X/DAY
     Route: 041
     Dates: start: 20161212, end: 20161218
  2. ZITHROMAX [Suspect]
     Active Substance: AZITHROMYCIN DIHYDRATE
     Indication: MYCOPLASMA INFECTION
     Dosage: 37 MG, 1X/DAY
     Route: 041
     Dates: start: 20161214, end: 20161218
  3. PIPERACILLIN SODIUM W/SULBACTAM SODIUM [Concomitant]
     Indication: PNEUMONIA
     Dosage: 0.19 G, 2X/DAY
     Route: 041
     Dates: start: 20161212, end: 20161218
  4. GLUCOSE [Concomitant]
     Active Substance: DEXTROSE
     Indication: VEHICLE SOLUTION USE
     Dosage: 10 ML, 1X/DAY
     Route: 041
     Dates: start: 20161214, end: 20161218

REACTIONS (3)
  - Cardiac arrest [Recovering/Resolving]
  - Pallor [Recovering/Resolving]
  - Cyanosis [Recovering/Resolving]

NARRATIVE: CASE EVENT DATE: 20161218
